FAERS Safety Report 26034929 (Version 2)
Quarter: 2025Q4

REPORT INFORMATION
  Report Type: Spontaneous
  Country: US (occurrence: US)
  Receive Date: 20251112
  Receipt Date: 20251119
  Transmission Date: 20260117
  Serious: No
  Sender: SANOFI AVENTIS
  Company Number: US-SA-2025SA331462

PATIENT
  Age: 21 Year
  Sex: Male

DRUGS (5)
  1. TZIELD [Suspect]
     Active Substance: TEPLIZUMAB-MZWV
     Indication: Diabetes prophylaxis
     Dosage: 2060 UG, QD
     Route: 040
     Dates: start: 20251027
  2. TZIELD [Suspect]
     Active Substance: TEPLIZUMAB-MZWV
     Indication: Presymptomatic type 1 diabetes mellitus
  3. ADVIL [Concomitant]
     Active Substance: IBUPROFEN
     Indication: Premedication
     Dosage: 400 MG, ORALLY 30 MINUTES PRIOR TO INFUSION
     Route: 048
     Dates: start: 20251027
  4. DIPHENHYDRAMINE [Concomitant]
     Active Substance: DIPHENHYDRAMINE
     Indication: Premedication
     Dosage: 25 MG, ORALLY 30 MINUTES PRIOR TO INFUSION
     Route: 048
     Dates: start: 20251027
  5. ZOFRAN [Concomitant]
     Active Substance: ONDANSETRON HYDROCHLORIDE
     Indication: Premedication
     Dosage: 4 MG, ORALLY 30 MINUTES PRIOR TO INFUSION
     Route: 048
     Dates: start: 20251027

REACTIONS (1)
  - Rash [Recovered/Resolved]

NARRATIVE: CASE EVENT DATE: 20251103
